FAERS Safety Report 8508378 (Version 2)
Quarter: 2014Q1

REPORT INFORMATION
  Report Type: Spontaneous
  Country: US (occurrence: US)
  Receive Date: 20120412
  Receipt Date: 20140111
  Transmission Date: 20141002
  Serious: No
  Sender: FDA-Public Use
  Company Number: US-ASTRAZENECA-2011SE54792

PATIENT
  Age: 55 Year
  Sex: Female
  Weight: 108.9 kg

DRUGS (7)
  1. NEXIUM [Suspect]
     Indication: GASTROOESOPHAGEAL REFLUX DISEASE
     Route: 048
     Dates: start: 2005, end: 20131229
  2. PRILOSEC OTC [Suspect]
     Route: 048
     Dates: start: 20131231, end: 20140102
  3. BENICAR [Concomitant]
     Indication: BLOOD PRESSURE ABNORMAL
  4. FLEXERIL [Concomitant]
     Indication: MUSCLE SPASMS
  5. OXYCONTIN [Concomitant]
     Indication: BACK PAIN
  6. IBUPROFEN [Concomitant]
     Indication: ANTIINFLAMMATORY THERAPY
  7. PERCOCET [Concomitant]
     Indication: BACK DISORDER

REACTIONS (10)
  - Odynophagia [Unknown]
  - Sleep disorder due to general medical condition, insomnia type [Unknown]
  - Malaise [Unknown]
  - Asthenia [Unknown]
  - Hypophagia [Unknown]
  - Fear of disease [Unknown]
  - Throat irritation [Unknown]
  - Intentional drug misuse [Unknown]
  - Drug dose omission [Unknown]
  - Drug ineffective [Unknown]
